FAERS Safety Report 23340846 (Version 1)
Quarter: 2023Q4

REPORT INFORMATION
  Report Type: Spontaneous
  Country: US (occurrence: US)
  Receive Date: 20231227
  Receipt Date: 20231227
  Transmission Date: 20240110
  Serious: No
  Sender: FDA-Public Use
  Company Number: US-EPICPHARMA-US-2023EPCSPO01859

PATIENT
  Age: 31 Year
  Sex: Male
  Weight: 190 kg

DRUGS (2)
  1. DEXTROAMPHET SACCHARAT, AMPHET ASPARTATE, DEXTROAMPHET SULFATE AND AMP [Suspect]
     Active Substance: AMPHETAMINE ASPARTATE\AMPHETAMINE ASPARTATE MONOHYDRATE\AMPHETAMINE SULFATE\DEXTROAMPHETAMINE SACCHA
     Indication: Attention deficit hyperactivity disorder
     Route: 065
     Dates: start: 2023, end: 20231213
  2. .ALPHA.-TOCOPHEROL [Concomitant]
     Active Substance: .ALPHA.-TOCOPHEROL
     Indication: Product used for unknown indication
     Route: 065

REACTIONS (11)
  - Anxiety [Unknown]
  - Feeling abnormal [Unknown]
  - Fatigue [Unknown]
  - Confusional state [Unknown]
  - Nervousness [Unknown]
  - Diarrhoea [Unknown]
  - Hyperhidrosis [Unknown]
  - Vomiting [Unknown]
  - Dysgeusia [Unknown]
  - Product taste abnormal [Unknown]
  - Drug ineffective [Unknown]

NARRATIVE: CASE EVENT DATE: 20230101
